FAERS Safety Report 5872344-8 (Version None)
Quarter: 2008Q3

REPORT INFORMATION
  Report Type: 
  Country: None (occurrence: None)
  Receive Date: 20080905
  Receipt Date: 20080829
  Transmission Date: 20090109
  Serious: Yes (Other)
  Sender: FDA-Public Use
  Company Number: US-ASTRAZENECA-2007UW27342

PATIENT
  Age: 38 Year
  Sex: Female
  Weight: 75.3 kg

DRUGS (4)
  1. SEROQUEL [Suspect]
     Indication: DEPRESSION
     Dosage: 25 MG, 100 MG, 200 MG, 300 MG, 600 MG, 800 MG
     Route: 048
     Dates: start: 20030901
  2. SEROQUEL [Suspect]
     Indication: SCHIZOAFFECTIVE DISORDER
     Dosage: 25 MG, 100 MG, 200 MG, 300 MG, 600 MG, 800 MG
     Route: 048
     Dates: start: 20030901
  3. PAROXETINE HCL [Concomitant]
     Route: 048
     Dates: start: 20071115
  4. TOPAMAX [Concomitant]
     Dates: start: 20060101

REACTIONS (4)
  - BLOOD CHOLESTEROL INCREASED [None]
  - COLLAPSE OF LUNG [None]
  - HYPERTENSION [None]
  - TYPE 2 DIABETES MELLITUS [None]
